FAERS Safety Report 16208011 (Version 2)
Quarter: 2019Q3

REPORT INFORMATION
  Report Type: Report from Study
  Country: None (occurrence: BR)
  Receive Date: 20190417
  Receipt Date: 20190719
  Transmission Date: 20191004
  Serious: Yes (Hospitalization, Other)
  Sender: FDA-Public Use
  Company Number: BR-ABBVIE-19K-020-2741690-00

PATIENT
  Age: 82 Year
  Sex: Female
  Weight: 86 kg

DRUGS (11)
  1. HUMIRA [Suspect]
     Active Substance: ADALIMUMAB
     Route: 058
  2. HUMIRA [Suspect]
     Active Substance: ADALIMUMAB
     Indication: COLITIS ULCERATIVE
     Route: 058
  3. HUMIRA [Suspect]
     Active Substance: ADALIMUMAB
     Indication: CROHN^S DISEASE
     Route: 058
  4. HUMIRA [Suspect]
     Active Substance: ADALIMUMAB
     Route: 058
  5. ATENOLOL. [Concomitant]
     Active Substance: ATENOLOL
     Indication: CARDIAC DISORDER
  6. LOSARTAN. [Concomitant]
     Active Substance: LOSARTAN
     Indication: BLOOD PRESSURE MEASUREMENT
  7. HUMIRA [Suspect]
     Active Substance: ADALIMUMAB
     Indication: RHEUMATOID ARTHRITIS
     Route: 058
     Dates: start: 20120901
  8. HUMIRA [Suspect]
     Active Substance: ADALIMUMAB
     Route: 058
  9. SIMVASTATIN. [Concomitant]
     Active Substance: SIMVASTATIN
     Indication: BLOOD CHOLESTEROL
  10. MESALAZINE [Concomitant]
     Active Substance: MESALAMINE
     Indication: CROHN^S DISEASE
     Route: 048
     Dates: end: 201812
  11. MESALAZINE [Concomitant]
     Active Substance: MESALAMINE
     Route: 054
     Dates: start: 201812

REACTIONS (22)
  - Neck mass [Unknown]
  - Urinary tract infection [Not Recovered/Not Resolved]
  - Coronary artery disease [Unknown]
  - Renal disorder [Recovered/Resolved]
  - Anal haemorrhage [Recovered/Resolved]
  - Pulmonary embolism [Unknown]
  - Gastrointestinal injury [Not Recovered/Not Resolved]
  - Depression [Not Recovered/Not Resolved]
  - Pneumonitis [Unknown]
  - Renal disorder [Recovered/Resolved]
  - Crohn^s disease [Recovering/Resolving]
  - Asthenia [Unknown]
  - Fluid retention [Unknown]
  - Atelectasis [Unknown]
  - Dermatitis allergic [Unknown]
  - Syncope [Unknown]
  - Weight increased [Unknown]
  - Blood test abnormal [Unknown]
  - Dehydration [Unknown]
  - Somnolence [Not Recovered/Not Resolved]
  - Colitis ulcerative [Unknown]
  - Serum ferritin increased [Unknown]

NARRATIVE: CASE EVENT DATE: 201812
